FAERS Safety Report 9829989 (Version 1)
Quarter: 2014Q1

REPORT INFORMATION
  Report Type: Spontaneous
  Country: IT (occurrence: IT)
  Receive Date: 20140120
  Receipt Date: 20140120
  Transmission Date: 20141002
  Serious: Yes (Other)
  Sender: FDA-Public Use
  Company Number: PHHY2014IT004835

PATIENT
  Age: 26 Year
  Sex: Male

DRUGS (2)
  1. ACETYLSALICYLIC ACID [Suspect]
     Indication: MYALGIA
     Dosage: 1 DF, ONCE/SINGLE
     Route: 048
     Dates: start: 20131220, end: 20131220
  2. ALIFLUS [Concomitant]

REACTIONS (1)
  - Urticaria [Recovering/Resolving]
